FAERS Safety Report 11277375 (Version 2)
Quarter: 2015Q3

REPORT INFORMATION
  Report Type: Spontaneous
  Country: JP (occurrence: JP)
  Receive Date: 20150716
  Receipt Date: 20150804
  Transmission Date: 20151125
  Serious: Yes (Death, Other)
  Sender: FDA-Public Use
  Company Number: JP-GLAXOSMITHKLINE-JP2015JPN101325

PATIENT
  Age: 78 Year
  Sex: Male
  Weight: 58 kg

DRUGS (14)
  1. PREDONINE [Suspect]
     Active Substance: PREDNISOLONE\PREDNISOLONE ACETATE\PREDNISOLONE SODIUM SUCCINATE
     Indication: IMMUNE THROMBOCYTOPENIC PURPURA
     Dosage: UNK, TID
     Route: 048
     Dates: start: 20150105, end: 20150119
  2. URSODEOXYCHOLIC ACID [Concomitant]
     Active Substance: URSODIOL
     Indication: LIVER DISORDER
     Dosage: 200 MG, TID
     Dates: start: 20141220, end: 20150202
  3. ALFACALCIDOL [Concomitant]
     Active Substance: ALFACALCIDOL
     Indication: OSTEOPOROSIS
     Dosage: 1 ?G, QD
     Dates: end: 20150202
  4. RENIVACE [Concomitant]
     Active Substance: ENALAPRIL
     Dosage: UNK UNK, 1D
     Dates: end: 20150202
  5. NIKORANMART [Concomitant]
     Active Substance: NICORANDIL
     Dosage: UNK UNK, 1D
     Dates: end: 20150202
  6. LANSOPRAZOLE-OD [Concomitant]
     Active Substance: LANSOPRAZOLE
     Dosage: UNK UNK, 1D
     Dates: end: 20150202
  7. REVOLADE [Suspect]
     Active Substance: ELTROMBOPAG
     Dosage: 25 MG, QD
     Route: 048
     Dates: start: 20150119, end: 20150202
  8. FUROSEMIDE. [Suspect]
     Active Substance: FUROSEMIDE
     Indication: URINE OUTPUT INCREASED
     Dosage: 20 MG, QD
     Route: 048
     Dates: start: 20150202, end: 20150202
  9. PERIACTIN [Concomitant]
     Active Substance: CYPROHEPTADINE HYDROCHLORIDE
     Indication: INCREASED APPETITE
     Dosage: 4 MG, TID
     Dates: start: 20150202, end: 20150202
  10. ROZEREM [Concomitant]
     Active Substance: RAMELTEON
     Indication: INSOMNIA
     Dosage: 8 MG, QD
     Dates: start: 20150130, end: 20150202
  11. BAKTAR [Concomitant]
     Active Substance: SULFAMETHOXAZOLE\TRIMETHOPRIM
     Indication: ANTIFUNGAL PROPHYLAXIS
     Dosage: 1 DF, QD
     Dates: start: 20141220, end: 20150202
  12. ZOLPIDEM TARTRATE. [Concomitant]
     Active Substance: ZOLPIDEM TARTRATE
     Dosage: UNK UNK, 1D
     Dates: start: 20150107, end: 20150202
  13. REVOLADE [Suspect]
     Active Substance: ELTROMBOPAG
     Indication: IMMUNE THROMBOCYTOPENIC PURPURA
     Dosage: 12.5 MG, QD
     Route: 048
     Dates: start: 20150105, end: 20150118
  14. PREDONINE [Suspect]
     Active Substance: PREDNISOLONE\PREDNISOLONE ACETATE\PREDNISOLONE SODIUM SUCCINATE
     Dosage: 20 MG, BID
     Route: 048
     Dates: start: 20150120, end: 20150202

REACTIONS (7)
  - Pneumonia [Fatal]
  - Sputum retention [Unknown]
  - Oxygen saturation decreased [Unknown]
  - Pleural effusion [Unknown]
  - Cerebral infarction [Fatal]
  - General physical health deterioration [Unknown]
  - Depressed level of consciousness [Unknown]

NARRATIVE: CASE EVENT DATE: 20150202
